FAERS Safety Report 6241667-5 (Version None)
Quarter: 2009Q2

REPORT INFORMATION
  Report Type: 
  Country: None (occurrence: None)
  Receive Date: 20090623
  Receipt Date: 20070201
  Transmission Date: 20091009
  Serious: Yes (Other)
  Sender: FDA-Public Use
  Company Number: PL-ROCHE-637397

PATIENT
  Age: 52 Year
  Sex: Female

DRUGS (5)
  1. CAPECITABINE [Suspect]
     Indication: GALLBLADDER CANCER
     Dosage: 2 CYCLES
     Route: 048
  2. CAPECITABINE [Suspect]
     Dosage: DOSE REDUCED, SIX CYCLES COMPLETED
     Route: 048
  3. CAPECITABINE [Suspect]
     Dosage: SIX CYCLES ADMINISTERED
     Route: 048
  4. GEMCITABINE [Suspect]
     Indication: GALLBLADDER CANCER
     Dosage: GIVEN ON DAY ONE AND EIGHT OF EVERY 3 WEEKS, SIX CYCLES COMPLETED, FORM: INFUSION
     Route: 042
  5. GEMCITABINE [Suspect]
     Dosage: SIX CYCLES ADMINISTERED
     Route: 042

REACTIONS (2)
  - MALIGNANT NEOPLASM PROGRESSION [None]
  - PALMAR-PLANTAR ERYTHRODYSAESTHESIA SYNDROME [None]
